FAERS Safety Report 18373963 (Version 3)
Quarter: 2020Q4

REPORT INFORMATION
  Report Type: Spontaneous
  Country: US (occurrence: US)
  Receive Date: 20201012
  Receipt Date: 20201026
  Transmission Date: 20210114
  Serious: No
  Sender: FDA-Public Use
  Company Number: US-PFIZER INC-2019352318

PATIENT
  Age: 38 Year
  Sex: Female

DRUGS (1)
  1. LYRICA [Suspect]
     Active Substance: PREGABALIN
     Indication: FIBROMYALGIA
     Dosage: 350 MG, DAILY (100 MG, 3 TIMES A DAY AND 1 OF 50 MG ONCE A DAY)

REACTIONS (2)
  - Confusional state [Unknown]
  - Headache [Unknown]
